FAERS Safety Report 11047752 (Version 4)
Quarter: 2015Q2

REPORT INFORMATION
  Report Type: Spontaneous
  Country: JP (occurrence: JP)
  Receive Date: 20150420
  Receipt Date: 20150616
  Transmission Date: 20150821
  Serious: Yes (Hospitalization)
  Sender: FDA-Public Use
  Company Number: JP-PFIZER INC-2015131337

PATIENT
  Age: 77 Year
  Sex: Female
  Weight: 51 kg

DRUGS (3)
  1. INLYTA [Suspect]
     Active Substance: AXITINIB
     Dosage: 15 MG, ONCE DAILY
     Route: 048
     Dates: start: 20150225, end: 20150304
  2. INLYTA [Suspect]
     Active Substance: AXITINIB
     Indication: RENAL CANCER
     Dosage: 10 MG, ONCE DAILY
     Route: 048
     Dates: start: 20150209, end: 20150224
  3. INLYTA [Suspect]
     Active Substance: AXITINIB
     Dosage: 20 MG, ONCE DAILY
     Route: 048
     Dates: start: 20150305, end: 20150404

REACTIONS (2)
  - Brain natriuretic peptide increased [Recovering/Resolving]
  - Product use issue [Unknown]

NARRATIVE: CASE EVENT DATE: 20150404
